FAERS Safety Report 5825433-8 (Version None)
Quarter: 2008Q3

REPORT INFORMATION
  Report Type: 
  Country: None (occurrence: None)
  Receive Date: 20080729
  Receipt Date: 20080721
  Transmission Date: 20090109
  Serious: Yes (Hospitalization)
  Sender: FDA-Public Use
  Company Number: DE-AVENTIS-200817002GDDC

PATIENT
  Age: 75 Year
  Sex: Male

DRUGS (5)
  1. DOCETAXEL [Suspect]
     Route: 042
     Dates: start: 20080708, end: 20080708
  2. OXALIPLATIN [Suspect]
     Route: 042
     Dates: start: 20080708, end: 20080708
  3. PANTOZOL                           /01263202/ [Concomitant]
     Route: 048
     Dates: start: 20080708
  4. ZOFRAN [Concomitant]
     Indication: NAUSEA
     Route: 048
     Dates: start: 20080708, end: 20080711
  5. DEXAMETHASONE [Concomitant]
     Indication: NAUSEA
     Route: 048
     Dates: start: 20080707, end: 20080709

REACTIONS (4)
  - ABDOMINAL PAIN [None]
  - DIARRHOEA [None]
  - DYSPNOEA [None]
  - EMPHYSEMA [None]
